FAERS Safety Report 13940232 (Version 1)
Quarter: 2017Q3

REPORT INFORMATION
  Report Type: Spontaneous
  Country: JP (occurrence: JP)
  Receive Date: 20170906
  Receipt Date: 20170906
  Transmission Date: 20171127
  Serious: Yes (Other)
  Sender: FDA-Public Use
  Company Number: JP-PFIZER INC-2017379547

PATIENT
  Age: 3 Decade
  Sex: Female

DRUGS (2)
  1. SEDIEL [Suspect]
     Active Substance: TANDOSPIRONE
     Dosage: 10 MG, 3X/DAY
     Route: 048
  2. SOLANAX [Suspect]
     Active Substance: ALPRAZOLAM
     Dosage: UNK
     Route: 048

REACTIONS (1)
  - Altered state of consciousness [Unknown]
